FAERS Safety Report 7955617-4 (Version None)
Quarter: 2011Q4

REPORT INFORMATION
  Report Type: 
  Country: None (occurrence: None)
  Receive Date: 20111202
  Receipt Date: 20111123
  Transmission Date: 20120403
  Serious: Yes (Hospitalization, Other)
  Sender: FDA-Public Use
  Company Number: US-ASTRAZENECA-2011SE15304

PATIENT
  Age: 59 Year
  Sex: Female

DRUGS (14)
  1. ANESTHESIA [Concomitant]
  2. UNSPECIFIED SUSPECT DRUG [Suspect]
     Route: 065
  3. LANTUS [Concomitant]
  4. FUROSEMIDE [Concomitant]
  5. LIDOCAINE [Concomitant]
  6. OXYCODONE HCL [Concomitant]
  7. PROZAC [Concomitant]
  8. POTASSIUM ACETATE [Concomitant]
  9. OXYCONTIN [Concomitant]
  10. TOPROL-XL [Suspect]
     Route: 048
  11. VARIOUS VITAMINS [Concomitant]
  12. WATER PILL [Concomitant]
  13. 20 OTHER MEDICATIONS [Concomitant]
  14. PERCOCET [Concomitant]

REACTIONS (20)
  - INTERVERTEBRAL DISC PROTRUSION [None]
  - MENISCUS LESION [None]
  - GRIP STRENGTH DECREASED [None]
  - FIBROMYALGIA [None]
  - WEIGHT DECREASED [None]
  - ARTHRITIS [None]
  - RASH MACULAR [None]
  - SPONDYLITIS [None]
  - ROAD TRAFFIC ACCIDENT [None]
  - MOBILITY DECREASED [None]
  - CYST [None]
  - HYPERPHAGIA [None]
  - BRONCHOPNEUMONIA [None]
  - MALAISE [None]
  - NERVE INJURY [None]
  - PAIN [None]
  - PLEURITIC PAIN [None]
  - SKIN CANCER [None]
  - DIABETES MELLITUS INADEQUATE CONTROL [None]
  - DRUG INEFFECTIVE [None]
